FAERS Safety Report 7109126-5 (Version None)
Quarter: 2010Q4

REPORT INFORMATION
  Report Type: 
  Country: None (occurrence: None)
  Receive Date: 20101117
  Receipt Date: 20101115
  Transmission Date: 20110411
  Serious: Yes (Other)
  Sender: FDA-Public Use
  Company Number: JP-PFIZER INC-2010147617

PATIENT
  Sex: Female

DRUGS (5)
  1. ZOLOFT [Suspect]
     Dosage: UNK
     Dates: start: 20101111
  2. RIZE [Concomitant]
     Dosage: UNK
  3. 8-HOUR BAYER [Concomitant]
     Dosage: UNK
  4. EPADEL [Concomitant]
     Dosage: UNK
  5. DEPAS [Concomitant]
     Dosage: UNK

REACTIONS (3)
  - AGITATION [None]
  - BLOOD PRESSURE INCREASED [None]
  - TERMINAL INSOMNIA [None]
